FAERS Safety Report 9433924 (Version 1)
Quarter: 2013Q3

REPORT INFORMATION
  Report Type: Spontaneous
  Country: US (occurrence: US)
  Receive Date: 20130801
  Receipt Date: 20130801
  Transmission Date: 20140515
  Serious: No
  Sender: FDA-Public Use
  Company Number: US-009507513-1307USA014277

PATIENT
  Sex: 0

DRUGS (2)
  1. SINGULAIR [Suspect]
     Indication: FOOD ALLERGY
     Dosage: 5 MG, TWICE DAILY
     Route: 048
     Dates: end: 201301
  2. MONTELUKAST SODIUM [Suspect]
     Indication: FOOD ALLERGY
     Dosage: UNK
     Dates: start: 2013

REACTIONS (3)
  - Headache [Unknown]
  - Off label use [Unknown]
  - Abdominal discomfort [Unknown]
